FAERS Safety Report 23962487 (Version 2)
Quarter: 2024Q3

REPORT INFORMATION
  Report Type: Spontaneous
  Country: US (occurrence: US)
  Receive Date: 20240611
  Receipt Date: 20240701
  Transmission Date: 20241017
  Serious: No
  Sender: PFIZER
  Company Number: US-PFIZER INC-PV202400011246

PATIENT
  Age: 70 Year
  Sex: Female
  Weight: 62.1 kg

DRUGS (1)
  1. IBRANCE [Suspect]
     Active Substance: PALBOCICLIB
     Dosage: 75 MG, CYCLIC (TAKE ONE DAILY FOR 21 DAYS ON, 7 DAYS OFF)
     Route: 048

REACTIONS (5)
  - Glomerular filtration rate decreased [Recovered/Resolved]
  - Blood glucose increased [Recovered/Resolved]
  - Blood creatinine increased [Recovered/Resolved]
  - Blood potassium decreased [Recovered/Resolved]
  - Anion gap decreased [Recovered/Resolved]

NARRATIVE: CASE EVENT DATE: 20240523
